FAERS Safety Report 4806738-6 (Version None)
Quarter: 2005Q4

REPORT INFORMATION
  Report Type: 
  Country: None (occurrence: None)
  Receive Date: 20051019
  Receipt Date: 20051010
  Transmission Date: 20060501
  Serious: Yes (Disabling)
  Sender: FDA-Public Use
  Company Number: 2005-10-0287

PATIENT
  Age: 54 Year
  Sex: Male

DRUGS (2)
  1. VIRAFERONPEG (PEG INTERFERON ALFA-2B RECOMBINANT) REDIPEN LIKE PEG-INT [Suspect]
     Indication: HEPATITIS C
     Dosage: 150 UG QWK SUBCUTANEOS
     Route: 058
     Dates: start: 20030515, end: 20040615
  2. REBETOL [Suspect]
     Indication: HEPATITIS C
     Dosage: ORAL
     Route: 048

REACTIONS (4)
  - DEMYELINATION [None]
  - OPTIC ISCHAEMIC NEUROPATHY [None]
  - OPTIC NEURITIS [None]
  - VISUAL ACUITY REDUCED [None]
